FAERS Safety Report 8136072 (Version 4)
Quarter: 2014Q3

REPORT INFORMATION
  Report Type: Spontaneous
  Country: JP (occurrence: None)
  Receive Date: 20110831
  Receipt Date: 20140821
  Transmission Date: 20150326
  Serious: Yes (Hospitalization)
  Sender: FDA-Public Use
  Company Number: JP-20110028

PATIENT
  Age: 79 Year
  Sex: Male

DRUGS (4)
  1. GELPART (GELATIN), UNKNOWN [Concomitant]
     Active Substance: GELATIN
  2. ETHIODIZED OIL [Suspect]
     Active Substance: ETHIODIZED OIL
     Indication: THERAPEUTIC EMBOLISATION
     Dosage: 10 ML (10 ML, 1 IN 1 D), INTRA-ARTERIAL
     Route: 013
     Dates: start: 20110413, end: 20110413
  3. (VOLTAREN SR) (DICLOFENAC) (DICLOFENAC) [Concomitant]
  4. EPIRUBICIN HYDROCHLORIDE. [Concomitant]
     Active Substance: EPIRUBICIN HYDROCHLORIDE
     Indication: THERAPEUTIC EMBOLISATION
     Dosage: 50 MG (50 MG, 1 IN 1 D), INTRA-ARTERIAL
     Route: 013
     Dates: start: 20110414, end: 20110414

REACTIONS (10)
  - Alanine aminotransferase increased [None]
  - Hyperuricaemia [None]
  - Hyperphosphataemia [None]
  - Blood calcium decreased [None]
  - Tumour lysis syndrome [None]
  - Off label use [None]
  - Renal failure [None]
  - Aspartate aminotransferase increased [None]
  - Renal failure acute [None]
  - Dialysis [None]

NARRATIVE: CASE EVENT DATE: 20110413
